FAERS Safety Report 5198845-6 (Version None)
Quarter: 2007Q1

REPORT INFORMATION
  Report Type: 
  Country: None (occurrence: None)
  Receive Date: 20070104
  Receipt Date: 20061222
  Transmission Date: 20070707
  Serious: Yes (Hospitalization)
  Sender: FDA-Public Use
  Company Number: PHMT2006CA02187

PATIENT
  Age: 72 Year
  Sex: Female

DRUGS (15)
  1. CLOZARIL [Suspect]
     Indication: SCHIZOPHRENIA
     Dosage: 200 MG DAILY
     Route: 048
     Dates: start: 20061108, end: 20061118
  2. RISPERDAL [Concomitant]
  3. AZITHROMYCIN [Concomitant]
  4. CELESTODERM [Concomitant]
  5. GLYCERIN SUPPOSITORIES [Concomitant]
  6. SALINEX NASAL DROPS [Concomitant]
  7. VALPROIC ACID [Concomitant]
  8. VENTOLIN [Concomitant]
  9. MONISTAT [Concomitant]
  10. OXYBUTYNIN [Concomitant]
  11. ASAPHEN [Concomitant]
  12. METFORMIN HCL [Concomitant]
  13. SYNTHROID [Concomitant]
  14. DETROL [Concomitant]
  15. COZAAR [Concomitant]

REACTIONS (4)
  - GENERAL PHYSICAL HEALTH DETERIORATION [None]
  - HYPERTHERMIA [None]
  - INFECTION [None]
  - PYREXIA [None]
